FAERS Safety Report 10155746 (Version 1)
Quarter: 2014Q2

REPORT INFORMATION
  Report Type: Spontaneous
  Country: IT (occurrence: IT)
  Receive Date: 20140506
  Receipt Date: 20140506
  Transmission Date: 20141212
  Serious: Yes (Life-Threatening)
  Sender: FDA-Public Use
  Company Number: IT-TEVA-477918ISR

PATIENT
  Age: 53 Year
  Sex: Female

DRUGS (4)
  1. EPIRUBICIN [Suspect]
     Indication: BREAST CANCER
     Dosage: 90 MG TOTAL
     Route: 042
     Dates: start: 20140401, end: 20140401
  2. ENDOXAN BAXTER 1 G POLVERE PER SOLUZIONE INIETTABILE - BAXTER S.P.A. [Suspect]
     Indication: PRODUCT USED FOR UNKNOWN INDICATION
     Dosage: 900 MG TOTAL
     Route: 042
     Dates: start: 20140401, end: 20140401
  3. LIMICAN 50 MG COMPRESSE [Concomitant]
     Indication: PRODUCT USED FOR UNKNOWN INDICATION
     Dosage: 50 MG
     Route: 048
  4. SOLDESAM 0,2% GOCCE ORALI SOLUZIONE [Concomitant]
     Indication: PRODUCT USED FOR UNKNOWN INDICATION
     Dosage: 32 GTT
     Route: 048

REACTIONS (2)
  - Epilepsy [Recovered/Resolved]
  - Loss of consciousness [Recovered/Resolved]
